FAERS Safety Report 6132616-9 (Version None)
Quarter: 2009Q1

REPORT INFORMATION
  Report Type: 
  Country: None (occurrence: None)
  Receive Date: 20090324
  Receipt Date: 20090310
  Transmission Date: 20090719
  Serious: Yes (Death)
  Sender: FDA-Public Use
  Company Number: 2009000752

PATIENT
  Age: 83 Year
  Sex: Female

DRUGS (1)
  1. TARCEVA [Suspect]
     Indication: BRONCHIAL CARCINOMA
     Dosage: (150 MG, QD), ORAL
     Route: 048

REACTIONS (1)
  - CARDIAC ARREST [None]
